FAERS Safety Report 6103163-5 (Version None)
Quarter: 2009Q1

REPORT INFORMATION
  Report Type: 
  Country: None (occurrence: None)
  Receive Date: 20090305
  Receipt Date: 20090219
  Transmission Date: 20090719
  Serious: Yes (Other)
  Sender: FDA-Public Use
  Company Number: CA-PFIZER INC-2008032679

PATIENT

DRUGS (5)
  1. CHAMPIX [Suspect]
     Indication: SMOKING CESSATION THERAPY
     Dosage: 1 MG, 2X/DAY
     Route: 048
     Dates: start: 20070910, end: 20071004
  2. CLAVULIN [Concomitant]
  3. PREDNISONE [Concomitant]
  4. SPIRIVA [Concomitant]
  5. APO-AMOXI [Concomitant]
     Dates: start: 20070908

REACTIONS (4)
  - BLISTER [None]
  - ERYTHEMA [None]
  - GAIT DISTURBANCE [None]
  - PRURITUS [None]
